FAERS Safety Report 8615758-5 (Version None)
Quarter: 2012Q3

REPORT INFORMATION
  Report Type: 
  Country: None (occurrence: None)
  Receive Date: 20120823
  Receipt Date: 20120816
  Transmission Date: 20120928
  Serious: Yes (Hospitalization)
  Sender: FDA-Public Use
  Company Number: 2012SP001699

PATIENT
  Age: 45 Year
  Sex: Male
  Weight: 144 kg

DRUGS (5)
  1. TOPROL-XL [Concomitant]
     Indication: PRODUCT USED FOR UNKNOWN INDICATION
  2. LATUDA [Suspect]
     Indication: SCHIZOPHRENIA
     Route: 048
     Dates: start: 20120313, end: 20120501
  3. ZYPREXA [Concomitant]
     Indication: SCHIZOPHRENIA
     Dates: start: 20070101
  4. ABILIFY [Concomitant]
     Indication: SCHIZOPHRENIA
     Dates: start: 20090101
  5. CITALOPRAM HYDROBROMIDE [Concomitant]
     Indication: SCHIZOPHRENIA
     Dates: start: 20080101

REACTIONS (1)
  - HAEMOLYTIC ANAEMIA [None]
